FAERS Safety Report 8960274 (Version 1)
Quarter: 2012Q4

REPORT INFORMATION
  Report Type: 
  Country: US (occurrence: US)
  Receive Date: 20121212
  Receipt Date: 20121212
  Transmission Date: 20130627
  Serious: No
  Sender: FDA-Public Use
  Company Number: US-009507513-1212USA003225

PATIENT
  Sex: Female

DRUGS (5)
  1. COZAAR [Suspect]
     Indication: BLOOD PRESSURE
     Dosage: 100 mg, qd
     Route: 048
     Dates: end: 20121202
  2. SYNTHROID [Concomitant]
  3. NORVASC [Concomitant]
  4. RANITIDINE [Concomitant]
  5. VITAMIN D (UNSPECIFIED) [Concomitant]

REACTIONS (9)
  - Oropharyngeal pain [Not Recovered/Not Resolved]
  - Vulvovaginal rash [Not Recovered/Not Resolved]
  - Visual impairment [Not Recovered/Not Resolved]
  - Feeling abnormal [Not Recovered/Not Resolved]
  - Muscle spasms [Not Recovered/Not Resolved]
  - Muscle spasms [Not Recovered/Not Resolved]
  - Back pain [Not Recovered/Not Resolved]
  - Pruritus [Not Recovered/Not Resolved]
  - Pruritus [Not Recovered/Not Resolved]
